FAERS Safety Report 22798552 (Version 8)
Quarter: 2024Q2

REPORT INFORMATION
  Report Type: Spontaneous
  Country: US (occurrence: US)
  Receive Date: 20230808
  Receipt Date: 20240522
  Transmission Date: 20240715
  Serious: Yes (Other)
  Sender: FDA-Public Use
  Company Number: US-PFIZER INC-202300062519

PATIENT
  Age: 70 Year
  Sex: Male
  Weight: 117.48 kg

DRUGS (22)
  1. SOMAVERT [Suspect]
     Active Substance: PEGVISOMANT
     Indication: Acromegaly
     Dosage: 30 MG, 1X/DAY (30MG BY INJECTION ONCE DAILY)
     Route: 058
     Dates: start: 20170616
  2. SOMAVERT [Suspect]
     Active Substance: PEGVISOMANT
     Indication: Carney complex
     Dosage: 30 MG, ALTERNATE DAY
     Dates: start: 20230201
  3. SOMAVERT [Suspect]
     Active Substance: PEGVISOMANT
     Indication: Gigantism
     Dosage: 20 MG, 1X/DAY
  4. SOMAVERT [Suspect]
     Active Substance: PEGVISOMANT
     Dosage: 30MG DAILY, INJECTION
     Route: 058
  5. SOMAVERT [Suspect]
     Active Substance: PEGVISOMANT
     Dosage: 30 MG, DAILY
  6. ACIPHEX SPRINKLE [Concomitant]
     Active Substance: RABEPRAZOLE SODIUM
     Dosage: 20 MG
  7. AMITRIPTYLINE [Concomitant]
     Active Substance: AMITRIPTYLINE
     Dosage: 10 MG
  8. MOMETASONE FUROATE [Concomitant]
     Active Substance: MOMETASONE FUROATE
     Dosage: 0.05%
  9. FLOVENT HFA [Concomitant]
     Active Substance: FLUTICASONE PROPIONATE
     Dosage: 110 UG
  10. LINZESS [Concomitant]
     Active Substance: LINACLOTIDE
     Dosage: 145 UG
  11. HYDROCHLOROTHIAZIDE\LOSARTAN [Concomitant]
     Active Substance: HYDROCHLOROTHIAZIDE\LOSARTAN
     Dosage: 100-12.5
  12. MECLIZINE [Concomitant]
     Active Substance: MECLIZINE HYDROCHLORIDE
     Dosage: 25 MG
  13. METFORMIN HYDROCHLORIDE [Concomitant]
     Active Substance: METFORMIN HYDROCHLORIDE
     Dosage: 750 MG
  14. METOPROLOL [Concomitant]
     Active Substance: METOPROLOL
     Dosage: 50 MG
  15. POTASSIUM [Concomitant]
     Active Substance: POTASSIUM
     Dosage: 99 MG
  16. ROSUVASTATIN CALCIUM [Concomitant]
     Active Substance: ROSUVASTATIN CALCIUM
     Dosage: 20 MG
  17. SPIRONOLACTONE [Concomitant]
     Active Substance: SPIRONOLACTONE
     Dosage: 25 MG
  18. TAMSULOSIN [Concomitant]
     Active Substance: TAMSULOSIN
     Dosage: 0.4 MG
  19. VITAMIN D NOS [Concomitant]
     Active Substance: CHOLECALCIFEROL\ERGOCALCIFEROL
     Dosage: 5000 IU
  20. VITAMIN D3 [Concomitant]
     Active Substance: CHOLECALCIFEROL
     Dosage: 2000 IU
  21. XOPENEX HFA [Concomitant]
     Active Substance: LEVALBUTEROL TARTRATE
     Dosage: UNK
  22. VITAMINS [Concomitant]
     Active Substance: VITAMINS

REACTIONS (4)
  - Heart valve operation [Not Recovered/Not Resolved]
  - Intentional product misuse [Unknown]
  - Product prescribing issue [Unknown]
  - Product dispensing error [Unknown]

NARRATIVE: CASE EVENT DATE: 20230201
